FAERS Safety Report 6009906-3 (Version None)
Quarter: 2008Q4

REPORT INFORMATION
  Report Type: 
  Country: None (occurrence: None)
  Receive Date: 20081218
  Receipt Date: 20081210
  Transmission Date: 20090506
  Serious: Yes (Hospitalization, Other)
  Sender: FDA-Public Use
  Company Number: JP-RANBAXY-2008US-19467

PATIENT

DRUGS (16)
  1. TRIAMCINOLONE [Suspect]
     Indication: STOMATITIS
     Dosage: UNK, UNK
     Route: 061
     Dates: start: 20071211
  2. TAXOL [Suspect]
     Indication: BREAST CANCER
     Dosage: 90 MG/M2, UNK
     Route: 041
     Dates: start: 20071015
  3. DEXART [Suspect]
     Indication: PREMEDICATION
     Dosage: 16.000000 MG, UNK
     Route: 042
     Dates: start: 20071015, end: 20071015
  4. AVASTIN [Suspect]
     Indication: BREAST CANCER
     Dosage: 10.000000 MG/KG, UNK
     Route: 042
     Dates: start: 20071015
  5. DEXART [Suspect]
     Dosage: 4.000000 MG, UNK
     Route: 042
     Dates: start: 20071029
  6. AMLODIN OD [Concomitant]
     Indication: DRUG USE FOR UNKNOWN INDICATION
     Dosage: 5 MG, QD
     Route: 048
     Dates: start: 20071226
  7. LENDORMIN D [Concomitant]
     Indication: DRUG USE FOR UNKNOWN INDICATION
     Dosage: UNK
     Route: 048
  8. MILTAX [Concomitant]
     Indication: DRUG USE FOR UNKNOWN INDICATION
     Route: 062
  9. MUCOSTA [Concomitant]
     Indication: DRUG USE FOR UNKNOWN INDICATION
     Route: 048
     Dates: start: 20080407
  10. TERRA-CORTRIL [Concomitant]
     Indication: DRUG USE FOR UNKNOWN INDICATION
     Route: 062
     Dates: start: 20080303
  11. MAGMITT [Concomitant]
     Indication: DRUG USE FOR UNKNOWN INDICATION
     Route: 048
     Dates: start: 20080122
  12. GLYCYRON [Concomitant]
     Indication: DRUG USE FOR UNKNOWN INDICATION
     Route: 048
  13. RESTAMIN [Concomitant]
     Indication: DRUG USE FOR UNKNOWN INDICATION
     Dosage: 50.000000 MG, UNK
     Route: 048
     Dates: start: 20071015
  14. ZANTAC [Concomitant]
     Indication: DRUG USE FOR UNKNOWN INDICATION
     Dosage: 50.000000 MG, UNK
     Route: 042
     Dates: start: 20071015
  15. KYTRIL [Concomitant]
     Indication: DRUG USE FOR UNKNOWN INDICATION
     Dosage: 3.000000 MG, UNK
     Route: 042
     Dates: start: 20071015
  16. O [Concomitant]
     Indication: DRUG USE FOR UNKNOWN INDICATION
     Route: 031
     Dates: start: 20080310

REACTIONS (3)
  - GINGIVAL INFECTION [None]
  - GINGIVAL PAIN [None]
  - OSTEITIS [None]
